FAERS Safety Report 15434868 (Version 1)
Quarter: 2018Q3

REPORT INFORMATION
  Report Type: Spontaneous
  Country: US (occurrence: US)
  Receive Date: 20180922
  Receipt Date: 20180922
  Transmission Date: 20181010
  Serious: Yes (Other)
  Sender: FDA-Public Use
  Company Number: None

PATIENT
  Age: 63 Year
  Sex: Female
  Weight: 82.35 kg

DRUGS (25)
  1. VICTOZA [Concomitant]
     Active Substance: LIRAGLUTIDE
  2. XYZAL [Concomitant]
     Active Substance: LEVOCETIRIZINE DIHYDROCHLORIDE
  3. CARDIAC STENTS [Concomitant]
  4. COQ10 [Concomitant]
     Active Substance: UBIDECARENONE
  5. STOOL SOFTENER W/LAXATIVE [Concomitant]
  6. ADDERALL [Concomitant]
     Active Substance: AMPHETAMINE ASPARTATE\AMPHETAMINE SULFATE\DEXTROAMPHETAMINE SACCHARATE\DEXTROAMPHETAMINE SULFATE
  7. KLONOPIN [Concomitant]
     Active Substance: CLONAZEPAM
  8. BIOTIN [Concomitant]
     Active Substance: BIOTIN
  9. TENNUS UNIT [Concomitant]
  10. B12 INJECTION [Concomitant]
  11. ERGOCALC VIT D2 [Concomitant]
  12. PLAVIX [Concomitant]
     Active Substance: CLOPIDOGREL BISULFATE
  13. PATADAY [Concomitant]
     Active Substance: OLOPATADINE HYDROCHLORIDE
  14. AMBIEN [Concomitant]
     Active Substance: ZOLPIDEM TARTRATE
  15. PROTONIX [Concomitant]
     Active Substance: PANTOPRAZOLE SODIUM
  16. OMEGA 3 ACID [Concomitant]
  17. ATIVAN [Concomitant]
     Active Substance: LORAZEPAM
  18. COZAAR [Concomitant]
     Active Substance: LOSARTAN POTASSIUM
  19. VOLTAREN [Concomitant]
     Active Substance: DICLOFENAC SODIUM
  20. CRESTOR [Concomitant]
     Active Substance: ROSUVASTATIN CALCIUM
  21. TRINTELLIX [Suspect]
     Active Substance: VORTIOXETINE HYDROBROMIDE
     Indication: DEPRESSION
     Dosage: ?          QUANTITY:.5 TABLETS;?
     Route: 048
  22. SYNTHROID [Concomitant]
     Active Substance: LEVOTHYROXINE SODIUM
  23. HYDROCODONE BITARTRATE AND ACETAMINOPHEN [Concomitant]
     Active Substance: ACETAMINOPHEN\HYDROCODONE BITARTRATE
  24. MYRBETRIQ [Concomitant]
     Active Substance: MIRABEGRON
  25. BENADRYL [Concomitant]
     Active Substance: DIPHENHYDRAMINE HYDROCHLORIDE

REACTIONS (6)
  - Crying [None]
  - Loss of personal independence in daily activities [None]
  - Suicidal ideation [None]
  - Activation syndrome [None]
  - Akathisia [None]
  - Feeling of despair [None]

NARRATIVE: CASE EVENT DATE: 20180801
